FAERS Safety Report 7756520-5 (Version None)
Quarter: 2011Q3

REPORT INFORMATION
  Report Type: 
  Country: None (occurrence: None)
  Receive Date: 20110916
  Receipt Date: 20110906
  Transmission Date: 20111222
  Serious: Yes (Hospitalization, Other)
  Sender: FDA-Public Use
  Company Number: US-ELI_LILLY_AND_COMPANY-US201107005037

PATIENT
  Age: 81 Year
  Sex: Female
  Weight: 77.098 kg

DRUGS (9)
  1. FORTEO [Suspect]
     Indication: OSTEOPOROSIS
     Dosage: 20 UG, QD
     Route: 065
     Dates: start: 20110301
  2. ZINC [Concomitant]
  3. ATENOLOL [Concomitant]
  4. CELEXA [Concomitant]
  5. VITAMIN D [Concomitant]
  6. CALCIUM CARBONATE [Concomitant]
  7. MAGNESIUM [Concomitant]
  8. ZOCOR [Concomitant]
  9. ATIVAN [Concomitant]

REACTIONS (3)
  - HEPATIC FAILURE [None]
  - LUNG ADENOCARCINOMA [None]
  - PANCREATITIS [None]
